FAERS Safety Report 8649966 (Version 3)
Quarter: 2012Q4

REPORT INFORMATION
  Report Type: 
  Country: CA (occurrence: CA)
  Receive Date: 20120705
  Receipt Date: 20120921
  Transmission Date: 20130627
  Serious: Yes (Death, Other)
  Sender: FDA-Public Use
  Company Number: CA-PFIZER INC-2012157819

PATIENT
  Age: 97 Year
  Sex: Female
  Weight: 40.82 kg

DRUGS (11)
  1. LYRICA [Suspect]
     Indication: NEURALGIA
     Dosage: 25 mg
     Route: 048
     Dates: start: 20120627, end: 20120627
  2. LYRICA [Suspect]
     Indication: PAIN
  3. WARFARIN [Concomitant]
     Indication: TRANSIENT ISCHAEMIC ATTACK
     Dosage: 3 mg/4mg daily
  4. WARFARIN [Concomitant]
     Indication: ATRIAL FIBRILLATION
  5. HYDROCHLOROTHIAZIDE [Concomitant]
     Indication: HYPERTENSION
     Dosage: 25 mg, 1x/day
     Dates: end: 20120712
  6. CRESTOR [Concomitant]
     Indication: HYPERLIPIDAEMIA
     Dosage: 5 mg, 1x/day
     Route: 048
     Dates: start: 2008
  7. TYLENOL [Concomitant]
     Indication: PAIN
     Dosage: 325 mg, as needed
  8. LETROZOLE [Concomitant]
     Indication: MASTECTOMY
     Dosage: UNK
     Dates: start: 200705, end: 201205
  9. LUMIGAN [Concomitant]
     Indication: GLAUCOMA
     Dosage: UNK
  10. TRUSOPT [Concomitant]
     Indication: GLAUCOMA
     Dosage: UNK
  11. SYNTHROID [Concomitant]
     Indication: HYPOTHYROIDISM
     Dosage: 50 ug, 1x/day
     Route: 048
     Dates: start: 2008

REACTIONS (4)
  - Cerebrovascular accident [Fatal]
  - Unresponsive to stimuli [Recovered/Resolved]
  - Somnolence [Recovered/Resolved]
  - Amnesia [Recovered/Resolved]
